FAERS Safety Report 8840219 (Version 2)
Quarter: 2013Q2

REPORT INFORMATION
  Report Type: Report from Study
  Country: JP (occurrence: JP)
  Receive Date: 20121015
  Receipt Date: 20130612
  Transmission Date: 20140414
  Serious: Yes (Hospitalization, Other)
  Sender: FDA-Public Use
  Company Number: JP-VERTEX PHARMACEUTICAL INC.-AE-2012-010893

PATIENT
  Age: 66 Year
  Sex: Male

DRUGS (13)
  1. VX-950 (TELAPREVIR) [Suspect]
     Indication: CHRONIC HEPATITIS C
     Dosage: 2250 MG, QD
     Route: 048
     Dates: start: 20120604, end: 20120617
  2. VX-950 (TELAPREVIR) [Suspect]
     Dosage: 2000 MG, QD
     Route: 048
     Dates: start: 20120618, end: 20120618
  3. VX-950 (TELAPREVIR) [Suspect]
     Dosage: 1500 MG, QD
     Route: 048
     Dates: start: 20120619, end: 20120707
  4. PEGINTRON [Suspect]
     Indication: CHRONIC HEPATITIS C
     Dosage: 1.5 ?G/KG, QW
     Route: 058
     Dates: start: 20120604, end: 20120702
  5. REBETOL [Suspect]
     Indication: CHRONIC HEPATITIS C
     Dosage: 600 MG, QD
     Route: 048
     Dates: start: 20120604, end: 20120707
  6. ZYLORIC [Suspect]
     Dosage: 200 MG, QD
     Route: 048
     Dates: start: 20120604, end: 20120605
  7. ZYLORIC [Suspect]
     Dosage: 300 MG, QD
     Route: 048
     Dates: start: 20120606, end: 20120707
  8. LIDOMEX [Concomitant]
     Dosage: UNK/ ON THE FACE AND NECK
     Route: 061
     Dates: start: 20120713, end: 20120713
  9. TALION [Concomitant]
     Dosage: 20 MG, QD
     Route: 048
     Dates: start: 20120713, end: 20120713
  10. TSUMARA RIKKUNSHITO EXTRACT GRANULES FOR ETHICAL USE [Concomitant]
     Dosage: 3 DF, QD
     Route: 048
     Dates: start: 20120604, end: 20120707
  11. TAKEPRON [Concomitant]
     Dosage: 15 MG, QD
     Route: 048
     Dates: start: 20120604, end: 20120707
  12. VOLTAREN [Concomitant]
     Dosage: 25 MG, QD PRN
     Route: 054
     Dates: start: 20120618, end: 20120702
  13. JUVELA [Concomitant]
     Dosage: UNK/APPLIED TO SORE AREAS OF THE TOES AND SOLES
     Route: 061
     Dates: start: 20120713, end: 20120713

REACTIONS (4)
  - Pancreatitis [Recovered/Resolved]
  - Renal impairment [Recovered/Resolved]
  - Drug eruption [Recovered/Resolved]
  - Drug eruption [Not Recovered/Not Resolved]
